FAERS Safety Report 13462497 (Version 3)
Quarter: 2017Q2

REPORT INFORMATION
  Report Type: Report from Study
  Country: US (occurrence: US)
  Receive Date: 20170420
  Receipt Date: 20170612
  Transmission Date: 20170830
  Serious: Yes (Other)
  Sender: FDA-Public Use
  Company Number: US-PFIZER INC-2016598611

PATIENT
  Age: 60 Year
  Sex: Female

DRUGS (1)
  1. IBRANCE [Suspect]
     Active Substance: PALBOCICLIB
     Indication: BREAST CANCER
     Dosage: 125 MG, DAILY
     Route: 048
     Dates: start: 20161220

REACTIONS (14)
  - Leukopenia [Unknown]
  - Nausea [Not Recovered/Not Resolved]
  - Headache [Unknown]
  - Stomatitis [Unknown]
  - Anaemia [Unknown]
  - Dry mouth [Not Recovered/Not Resolved]
  - Fatigue [Unknown]
  - Alopecia [Unknown]
  - Bone marrow failure [Unknown]
  - Muscle spasms [Not Recovered/Not Resolved]
  - Thrombocytopenia [Unknown]
  - Skin disorder [Unknown]
  - Hot flush [Unknown]
  - Dysgeusia [Not Recovered/Not Resolved]
